FAERS Safety Report 9812942 (Version 2)
Quarter: 2014Q1

REPORT INFORMATION
  Report Type: Spontaneous
  Country: US (occurrence: None)
  Receive Date: 20140108
  Receipt Date: 20140312
  Transmission Date: 20141002
  Serious: Yes (Other)
  Sender: FDA-Public Use
  Company Number: ADR-2014-00023

PATIENT
  Age: 24 Year
  Sex: Male

DRUGS (1)
  1. LIORESAL [Suspect]
     Indication: MUSCLE SPASTICITY
     Dates: start: 20120709

REACTIONS (11)
  - Device occlusion [None]
  - Device damage [None]
  - Catheter site haematoma [None]
  - Cerebrospinal fluid leakage [None]
  - Device malfunction [None]
  - Device breakage [None]
  - Complication of device removal [None]
  - Device kink [None]
  - Implant site swelling [None]
  - Procedural complication [None]
  - Hypertonia [None]
